FAERS Safety Report 11643460 (Version 1)
Quarter: 2015Q4

REPORT INFORMATION
  Report Type: Spontaneous
  Country: GB (occurrence: None)
  Receive Date: 20151019
  Receipt Date: 20151019
  Transmission Date: 20160304
  Serious: No
  Sender: FDA-Public Use
  Company Number: None

PATIENT
  Age: 42 Year
  Sex: Female
  Weight: 54 kg

DRUGS (3)
  1. DO-DO CHESTEZE [Suspect]
     Active Substance: CAFFEINE\EPHEDRINE HYDROCHLORIDE\THEOPHYLLINE
     Indication: LOWER RESPIRATORY TRACT CONGESTION
     Dosage: TAKEN BY MOUTH
     Dates: start: 20151018, end: 20151018
  2. IBUPROFEN. [Concomitant]
     Active Substance: IBUPROFEN
  3. DO-DO CHESTEZE [Suspect]
     Active Substance: CAFFEINE\EPHEDRINE HYDROCHLORIDE\THEOPHYLLINE
     Indication: ANTITUSSIVE THERAPY
     Dosage: TAKEN BY MOUTH
     Dates: start: 20151018, end: 20151018

REACTIONS (8)
  - Initial insomnia [None]
  - Dry mouth [None]
  - Palpitations [None]
  - Dizziness [None]
  - Nausea [None]
  - Tremor [None]
  - Polydipsia [None]
  - Heart rate increased [None]

NARRATIVE: CASE EVENT DATE: 20151018
